FAERS Safety Report 18311890 (Version 1)
Quarter: 2020Q3

REPORT INFORMATION
  Report Type: Spontaneous
  Country: US (occurrence: US)
  Receive Date: 20200924
  Receipt Date: 20200924
  Transmission Date: 20201103
  Serious: Yes (Other)
  Sender: FDA-Public Use
  Company Number: None

PATIENT
  Age: 66 Year
  Sex: Male
  Weight: 54 kg

DRUGS (1)
  1. IRON SUCROSE (IRON SUCROSE 20MG/ML INJ) [Suspect]
     Active Substance: IRON SUCROSE
     Route: 042
     Dates: start: 20200709, end: 20200709

REACTIONS (4)
  - Hypotension [None]
  - Headache [None]
  - Syncope [None]
  - Dizziness [None]

NARRATIVE: CASE EVENT DATE: 20200709
